FAERS Safety Report 6069774-0 (Version None)
Quarter: 2009Q1

REPORT INFORMATION
  Report Type: 
  Country: None (occurrence: None)
  Receive Date: 20090204
  Receipt Date: 20090204
  Transmission Date: 20090719
  Serious: No
  Sender: FDA-Public Use
  Company Number: None

PATIENT
  Age: 49 Year
  Sex: Male
  Weight: 290 kg

DRUGS (2)
  1. CLINDOMYCIN 300 MG [Suspect]
     Indication: ANIMAL BITE
     Dosage: 300 MG QID PO
     Route: 048
     Dates: start: 20080818, end: 20080819
  2. CLINDOMYCIN 300 MG [Suspect]
     Indication: PROPHYLAXIS
     Dosage: 300 MG QID PO
     Route: 048
     Dates: start: 20080818, end: 20080819

REACTIONS (1)
  - RASH GENERALISED [None]
